FAERS Safety Report 13025510 (Version 1)
Quarter: 2016Q4

REPORT INFORMATION
  Report Type: Other
  Country: US (occurrence: US)
  Receive Date: 20161214
  Receipt Date: 20161214
  Transmission Date: 20170207
  Serious: Yes (Other)
  Sender: FDA-Public Use
  Company Number: US-SHIRE-US201615136

PATIENT
  Age: 76 Year
  Sex: Female
  Weight: 49.89 kg

DRUGS (3)
  1. XIIDRA [Suspect]
     Active Substance: LIFITEGRAST
     Indication: PRODUCT USED FOR UNKNOWN INDICATION
     Dosage: UNK, 2X/DAY:BID
     Route: 047
     Dates: start: 20160926, end: 20161009
  2. RETAINE HPMC [Concomitant]
     Active Substance: HYPROMELLOSE 2910 (4000 MPA.S)
     Indication: DRY EYE
     Dosage: UNK, UNKNOWN
     Route: 065
  3. TEARS [Concomitant]
     Indication: DRY EYE
     Dosage: UNK, UNKNOWN
     Route: 065

REACTIONS (5)
  - Eye discharge [Recovered/Resolved]
  - Hypersensitivity [Recovered/Resolved]
  - Vision blurred [Recovered/Resolved]
  - Eye infection [Recovered/Resolved]
  - Instillation site swelling [Recovered/Resolved]

NARRATIVE: CASE EVENT DATE: 201610
